FAERS Safety Report 5123418-0 (Version None)
Quarter: 2006Q4

REPORT INFORMATION
  Report Type: 
  Country: None (occurrence: None)
  Receive Date: 20061005
  Receipt Date: 20060922
  Transmission Date: 20070319
  Serious: Yes (Hospitalization, Congenital Anomaly, Other)
  Sender: FDA-Public Use
  Company Number: JP200608004683

PATIENT
  Age: 1 Day
  Sex: Female
  Weight: 3.1 kg

DRUGS (1)
  1. ZYPREXA [Suspect]
     Dosage: TRANSPLACENTAL
     Route: 064

REACTIONS (8)
  - ANAL STENOSIS [None]
  - AUTOSOMAL CHROMOSOME ANOMALY [None]
  - CONGENITAL ANOMALY [None]
  - DRUG EXPOSURE DURING PREGNANCY [None]
  - LOW SET EARS [None]
  - PRETERNATURAL ANUS [None]
  - SKULL MALFORMATION [None]
  - THROMBOCYTOPENIA [None]
